FAERS Safety Report 12376493 (Version 1)
Quarter: 2016Q2

REPORT INFORMATION
  Report Type: Spontaneous
  Country: US (occurrence: US)
  Receive Date: 20160517
  Receipt Date: 20160517
  Transmission Date: 20160815
  Serious: No
  Sender: FDA-Public Use
  Company Number: US-TEIKOKU PHARMA USA-TPU2016-00091

PATIENT
  Sex: Male
  Weight: 77.18 kg

DRUGS (3)
  1. BENAZEPRIL [Concomitant]
     Active Substance: BENAZEPRIL HYDROCHLORIDE
     Indication: HYPERTENSION
     Dates: start: 2013
  2. LIDODERM [Suspect]
     Active Substance: LIDOCAINE
     Indication: MUSCULOSKELETAL DISCOMFORT
     Route: 061
     Dates: start: 201109
  3. ALEVE [Concomitant]
     Active Substance: NAPROXEN SODIUM
     Indication: BLOOD PRESSURE MEASUREMENT

REACTIONS (1)
  - Hypertension [Not Recovered/Not Resolved]

NARRATIVE: CASE EVENT DATE: 2013
